FAERS Safety Report 21381806 (Version 2)
Quarter: 2022Q4

REPORT INFORMATION
  Report Type: Spontaneous
  Country: CA (occurrence: CA)
  Receive Date: 20220927
  Receipt Date: 20221230
  Transmission Date: 20230113
  Serious: Yes (Death, Other)
  Sender: FDA-Public Use
  Company Number: CA-TAKEDA-2022TUS068116

PATIENT
  Age: 74 Year
  Sex: Male

DRUGS (11)
  1. HUMAN IMMUNOGLOBULIN G [Suspect]
     Active Substance: HUMAN IMMUNOGLOBULIN G
     Indication: Pure white cell aplasia
     Dosage: 1 GRAM
     Route: 042
  2. HUMAN IMMUNOGLOBULIN G [Suspect]
     Active Substance: HUMAN IMMUNOGLOBULIN G
     Indication: Febrile neutropenia
     Dosage: 1 GRAM
     Route: 065
  3. CYCLOSPORINE [Suspect]
     Active Substance: CYCLOSPORINE
     Indication: Pure white cell aplasia
     Dosage: 100 MILLIGRAM, BID
     Route: 065
  4. CYCLOSPORINE [Suspect]
     Active Substance: CYCLOSPORINE
     Indication: Febrile neutropenia
     Dosage: 50 MILLIGRAM, BID
     Route: 065
  5. DANAZOL [Suspect]
     Active Substance: DANAZOL
     Indication: Pure white cell aplasia
     Dosage: 200 MILLIGRAM, BID
     Route: 065
  6. DANAZOL [Suspect]
     Active Substance: DANAZOL
     Indication: Cytopenia
  7. DAPSONE [Suspect]
     Active Substance: DAPSONE
     Indication: Pure white cell aplasia
     Dosage: 100 MILLIGRAM, QD
     Route: 065
  8. DAPSONE [Suspect]
     Active Substance: DAPSONE
     Indication: Cytopenia
  9. FILGRASTIM [Suspect]
     Active Substance: FILGRASTIM
     Indication: Pure white cell aplasia
     Dosage: UNK
     Route: 065
  10. FILGRASTIM [Suspect]
     Active Substance: FILGRASTIM
     Indication: Febrile neutropenia
     Dosage: 300 MICROGRAM
     Route: 058
  11. FILGRASTIM [Suspect]
     Active Substance: FILGRASTIM
     Dosage: 300 MICROGRAM
     Route: 065

REACTIONS (4)
  - Drug ineffective [Fatal]
  - Multiple organ dysfunction syndrome [Fatal]
  - Sepsis [Fatal]
  - Thrombocytopenia [Fatal]
